FAERS Safety Report 20926819 (Version 2)
Quarter: 2022Q3

REPORT INFORMATION
  Report Type: Spontaneous
  Country: AR (occurrence: AR)
  Receive Date: 20220607
  Receipt Date: 20220701
  Transmission Date: 20221026
  Serious: Yes (Life-Threatening, Other)
  Sender: FDA-Public Use
  Company Number: AR-TAKEDA-2022TUS037626

PATIENT
  Age: 2 Year
  Sex: Male
  Weight: 18.6 kg

DRUGS (9)
  1. ADYNOVATE [Suspect]
     Active Substance: ANTIHEMOPHILIC FACTOR, HUMAN RECOMBINANT
     Indication: Immune system disorder
     Dosage: 500 INTERNATIONAL UNIT
     Route: 042
     Dates: start: 20220530, end: 20220530
  2. ADYNOVATE [Suspect]
     Active Substance: ANTIHEMOPHILIC FACTOR, HUMAN RECOMBINANT
     Indication: Immune system disorder
     Dosage: 500 INTERNATIONAL UNIT
     Route: 042
     Dates: start: 20220530, end: 20220530
  3. ADYNOVATE [Suspect]
     Active Substance: ANTIHEMOPHILIC FACTOR, HUMAN RECOMBINANT
     Indication: Immune system disorder
     Dosage: 500 INTERNATIONAL UNIT
     Route: 042
     Dates: start: 20220530, end: 20220530
  4. ADYNOVATE [Suspect]
     Active Substance: ANTIHEMOPHILIC FACTOR, HUMAN RECOMBINANT
     Dosage: 1500 INTERNATIONAL UNIT
     Route: 042
     Dates: start: 20220530, end: 20220530
  5. ADYNOVATE [Suspect]
     Active Substance: ANTIHEMOPHILIC FACTOR, HUMAN RECOMBINANT
     Dosage: 1500 INTERNATIONAL UNIT
     Route: 042
     Dates: start: 20220530, end: 20220530
  6. ADYNOVATE [Suspect]
     Active Substance: ANTIHEMOPHILIC FACTOR, HUMAN RECOMBINANT
     Dosage: 1500 INTERNATIONAL UNIT
     Route: 042
     Dates: start: 20220530, end: 20220530
  7. ADVATE [Suspect]
     Active Substance: ANTIHEMOPHILIC FACTOR, HUMAN RECOMBINANT
     Indication: Immune system disorder
     Dosage: 1000 INTERNATIONAL UNIT, Q3WEEKS
     Route: 042
     Dates: start: 20211210
  8. ADVATE [Suspect]
     Active Substance: ANTIHEMOPHILIC FACTOR, HUMAN RECOMBINANT
     Indication: Immune system disorder
     Dosage: 1000 INTERNATIONAL UNIT, Q3WEEKS
     Route: 042
     Dates: start: 20211210
  9. ADVATE [Suspect]
     Active Substance: ANTIHEMOPHILIC FACTOR, HUMAN RECOMBINANT
     Indication: Immune system disorder
     Dosage: 1000 INTERNATIONAL UNIT, Q3WEEKS
     Route: 042
     Dates: start: 20211210

REACTIONS (1)
  - Anaphylactic reaction [Recovered/Resolved]

NARRATIVE: CASE EVENT DATE: 20220527
